FAERS Safety Report 20379504 (Version 1)
Quarter: 2022Q1

REPORT INFORMATION
  Report Type: Spontaneous
  Country: US (occurrence: None)
  Receive Date: 20220126
  Receipt Date: 20220126
  Transmission Date: 20220423
  Serious: Yes (Other)
  Sender: FDA-Public Use
  Company Number: None

PATIENT
  Age: 56 Year
  Sex: Male
  Weight: 72 kg

DRUGS (5)
  1. STELARA [Suspect]
     Active Substance: USTEKINUMAB
     Indication: Psoriasis
     Dosage: OTHER FREQUENCY : EVERY 12 WEEKS;?
     Route: 058
  2. promethazine 12.5 [Concomitant]
  3. TAMSULOSIN [Concomitant]
     Active Substance: TAMSULOSIN
  4. TRAMADOL [Concomitant]
     Active Substance: TRAMADOL
  5. triamcinolone external cream [Concomitant]

REACTIONS (6)
  - Drug ineffective [None]
  - Skin exfoliation [None]
  - Skin fissures [None]
  - Skin haemorrhage [None]
  - Furuncle [None]
  - Staphylococcal skin infection [None]
